FAERS Safety Report 10162938 (Version 2)
Quarter: 2014Q2

REPORT INFORMATION
  Report Type: Spontaneous
  Country: US (occurrence: US)
  Receive Date: 20140509
  Receipt Date: 20140602
  Transmission Date: 20141212
  Serious: Yes (Hospitalization)
  Sender: FDA-Public Use
  Company Number: US-PFIZER INC-2014126531

PATIENT
  Age: 55 Year
  Sex: Female
  Weight: 56.7 kg

DRUGS (5)
  1. CHANTIX [Suspect]
     Indication: SMOKING CESSATION THERAPY
     Dosage: UNK DAILY, AS PER PACK
     Route: 048
     Dates: start: 20140307, end: 20140318
  2. PERCOCET [Concomitant]
     Indication: RADICULOPATHY
     Dosage: UNK
  3. PERCOCET [Concomitant]
     Indication: BACK PAIN
  4. ACETAMINOPHEN W/OXYCODONE [Concomitant]
     Indication: RADICULOPATHY
     Dosage: OXYCODONE 5/ ACETAMINOPHEN 325, 1 TAB TWICE A DAY AS NEEDED 1 DF, AS NEEDED
     Dates: start: 20140107
  5. BACLOFEN [Concomitant]
     Indication: RADICULOPATHY
     Dosage: 10 MG, EVERY 6 HOURS AS NEEDED
     Dates: start: 20140107

REACTIONS (1)
  - Non-cardiac chest pain [Recovered/Resolved]
